FAERS Safety Report 23873026 (Version 1)
Quarter: 2024Q2

REPORT INFORMATION
  Report Type: Spontaneous
  Country: US (occurrence: US)
  Receive Date: 20240520
  Receipt Date: 20240520
  Transmission Date: 20240717
  Serious: Yes (Other)
  Sender: FDA-Public Use
  Company Number: US-TEVA-VS-3154397

PATIENT
  Age: 36 Year
  Sex: Female

DRUGS (1)
  1. CLONAZEPAM [Suspect]
     Active Substance: CLONAZEPAM
     Indication: Product used for unknown indication
     Route: 065

REACTIONS (5)
  - Pneumonia [Unknown]
  - Intentional dose omission [Unknown]
  - Drug screen negative [Unknown]
  - Nausea [Unknown]
  - Adverse event [Unknown]

NARRATIVE: CASE EVENT DATE: 20240122
